FAERS Safety Report 7528242-7 (Version None)
Quarter: 2011Q2

REPORT INFORMATION
  Report Type: 
  Country: None (occurrence: None)
  Receive Date: 20110607
  Receipt Date: 20101028
  Transmission Date: 20111010
  Serious: No
  Sender: FDA-Public Use
  Company Number: US-ASTRAZENECA-2010SE51840

PATIENT
  Age: 18611 Day
  Sex: Female
  Weight: 88.5 kg

DRUGS (2)
  1. OMEPRAZOLE [Suspect]
     Route: 048
     Dates: start: 20101028, end: 20101028
  2. LANSOPRAZOLE [Suspect]
     Route: 048
     Dates: end: 20101028

REACTIONS (7)
  - DRY THROAT [None]
  - CHEST PAIN [None]
  - HEADACHE [None]
  - ABDOMINAL PAIN UPPER [None]
  - DYSPNOEA [None]
  - SYNCOPE [None]
  - CHILLS [None]
